FAERS Safety Report 10233275 (Version 1)
Quarter: 2014Q2

REPORT INFORMATION
  Report Type: Spontaneous
  Country: US (occurrence: US)
  Receive Date: 20140612
  Receipt Date: 20140612
  Transmission Date: 20141212
  Serious: No
  Sender: FDA-Public Use
  Company Number: US-PFIZER INC-2014160361

PATIENT
  Sex: Female

DRUGS (3)
  1. EFFEXOR XR [Suspect]
     Indication: DEPRESSION
     Dosage: 75 MG, 1X/DAY
     Route: 048
     Dates: start: 2011
  2. EFFEXOR XR [Suspect]
     Dosage: 37.5 MG, UNK
     Route: 048
  3. ADDERALL [Concomitant]
     Dosage: UNK

REACTIONS (3)
  - Thinking abnormal [Not Recovered/Not Resolved]
  - Iron deficiency anaemia [Not Recovered/Not Resolved]
  - Malaise [Not Recovered/Not Resolved]
